FAERS Safety Report 22611790 (Version 1)
Quarter: 2023Q2

REPORT INFORMATION
  Report Type: Spontaneous
  Country: US (occurrence: US)
  Receive Date: 20230616
  Receipt Date: 20230616
  Transmission Date: 20230722
  Serious: Yes (Other)
  Sender: FDA-Public Use
  Company Number: US-GILEAD-2023-0632266

PATIENT
  Age: 70 Year
  Sex: Male
  Weight: 102.9 kg

DRUGS (1)
  1. YESCARTA [Suspect]
     Active Substance: AXICABTAGENE CILOLEUCEL
     Indication: Diffuse large B-cell lymphoma
     Dosage: UNK (INFUSION)
     Route: 065
     Dates: start: 20221121, end: 20221121

REACTIONS (18)
  - Hyperbilirubinaemia [Unknown]
  - Cytokine release syndrome [Unknown]
  - Immune effector cell-associated neurotoxicity syndrome [Unknown]
  - Fatigue [Unknown]
  - Confusional state [Unknown]
  - Memory impairment [Unknown]
  - Somnolence [Unknown]
  - Dysphagia [Unknown]
  - Incontinence [Unknown]
  - Arthralgia [Unknown]
  - Malaise [Unknown]
  - Myalgia [Unknown]
  - Nausea [Unknown]
  - Aspartate aminotransferase increased [Unknown]
  - Agitation [Unknown]
  - Alanine aminotransferase increased [Unknown]
  - Aphasia [Unknown]
  - Decreased appetite [Unknown]

NARRATIVE: CASE EVENT DATE: 20221122
